FAERS Safety Report 4846477-9 (Version None)
Quarter: 2005Q4

REPORT INFORMATION
  Report Type: 
  Country: None (occurrence: None)
  Receive Date: 20051202
  Receipt Date: 20051118
  Transmission Date: 20060501
  Serious: Yes (Other)
  Sender: FDA-Public Use
  Company Number: 2005-01712

PATIENT
  Age: 66 Year

DRUGS (3)
  1. VELCADE [Suspect]
     Indication: MULTIPLE MYELOMA
     Dosage: 1.30 MG/M2, 2/WEEK, INTRAVENOUS
     Route: 042
     Dates: start: 20040916
  2. MORPHINE [Concomitant]
  3. DEXAMETHASONE [Concomitant]

REACTIONS (1)
  - OPTIC NEURITIS [None]
